FAERS Safety Report 24159147 (Version 2)
Quarter: 2025Q1

REPORT INFORMATION
  Report Type: Other
  Country: US (occurrence: US)
  Receive Date: 20240731
  Receipt Date: 20250324
  Transmission Date: 20250409
  Serious: No
  Sender: TRAVERE THERAPEUTICS
  Company Number: US-TRAVERE-2024TVT00655

PATIENT
  Sex: Male

DRUGS (2)
  1. FILSPARI [Suspect]
     Active Substance: SPARSENTAN
     Indication: IgA nephropathy
     Route: 048
  2. FILSPARI [Suspect]
     Active Substance: SPARSENTAN
     Route: 048

REACTIONS (5)
  - Feeling abnormal [Unknown]
  - Chromaturia [Recovered/Resolved]
  - Infection [Unknown]
  - Glomerular filtration rate abnormal [Unknown]
  - Renal impairment [Unknown]
